FAERS Safety Report 23100435 (Version 1)
Quarter: 2023Q4

REPORT INFORMATION
  Report Type: Spontaneous
  Country: US (occurrence: US)
  Receive Date: 20231024
  Receipt Date: 20231024
  Transmission Date: 20240109
  Serious: Yes (Other)
  Sender: FDA-Public Use
  Company Number: US-PFIZER INC-PV202300174937

PATIENT

DRUGS (2)
  1. CARBOPLATIN [Suspect]
     Active Substance: CARBOPLATIN
     Dosage: UNK, WEEKLY
     Dates: start: 20200331, end: 20200918
  2. TAXOL [Suspect]
     Active Substance: PACLITAXEL
     Dosage: UNK, WEEKLY
     Dates: start: 20200331, end: 20200918

REACTIONS (3)
  - Neuropathy peripheral [Unknown]
  - Neoplasm progression [Unknown]
  - Off label use [Unknown]

NARRATIVE: CASE EVENT DATE: 20200331
